FAERS Safety Report 5997413-3 (Version None)
Quarter: 2008Q4

REPORT INFORMATION
  Report Type: 
  Country: None (occurrence: None)
  Receive Date: 20081212
  Receipt Date: 20081112
  Transmission Date: 20090506
  Serious: No
  Sender: FDA-Public Use
  Company Number: US-ABBOTT-08P-163-0487417-00

PATIENT
  Sex: Female
  Weight: 74.91 kg

DRUGS (6)
  1. HUMIRA [Suspect]
     Indication: CROHN'S DISEASE
     Route: 058
     Dates: start: 20080901
  2. MESALAMINE [Concomitant]
     Indication: CROHN'S DISEASE
  3. METRONIDAZOLE [Concomitant]
     Indication: CROHN'S DISEASE
  4. LISINOPRIL [Concomitant]
     Indication: HYPERTENSION
  5. ALPRAZOLAM [Concomitant]
     Indication: INSOMNIA
  6. CONJUGATED ESTROGENS [Concomitant]
     Indication: HORMONE REPLACEMENT THERAPY

REACTIONS (2)
  - INCREASED TENDENCY TO BRUISE [None]
  - INJECTION SITE HAEMATOMA [None]
